FAERS Safety Report 8050973-3 (Version None)
Quarter: 2012Q1

REPORT INFORMATION
  Report Type: 
  Country: None (occurrence: None)
  Receive Date: 20120117
  Receipt Date: 20120110
  Transmission Date: 20120608
  Serious: Yes (Other)
  Sender: FDA-Public Use
  Company Number: PHHY2012AR002544

PATIENT
  Sex: Female

DRUGS (6)
  1. ALPLAX [Concomitant]
  2. MIOCARDIS PLUS [Concomitant]
  3. TERLOC (AMLODIPINE BESILATE) [Concomitant]
  4. ACCOLATE [Concomitant]
  5. ZENITUS [Concomitant]
  6. DIOVAN [Suspect]
     Indication: HYPERTENSION
     Dosage: 160 MG, DAILY
     Dates: start: 20000101, end: 20110701

REACTIONS (4)
  - ASTHMA [None]
  - DEPRESSION [None]
  - DRUG INEFFECTIVE [None]
  - BLOOD PRESSURE INCREASED [None]
